FAERS Safety Report 17773315 (Version 1)
Quarter: 2020Q2

REPORT INFORMATION
  Report Type: Report from Study
  Country: IN (occurrence: IN)
  Receive Date: 20200512
  Receipt Date: 20200512
  Transmission Date: 20200714
  Serious: Yes (Other)
  Sender: FDA-Public Use
  Company Number: NVSC2020IN128477

PATIENT
  Age: 73 Year
  Sex: Female
  Weight: 42 kg

DRUGS (1)
  1. GALVUS MET [Suspect]
     Active Substance: METFORMIN HYDROCHLORIDE\VILDAGLIPTIN
     Indication: DIABETES MELLITUS
     Dosage: 1 DF, BID (METFORMIN 1000 MG, VILDAGLIPTIN 50 MG)
     Route: 048

REACTIONS (7)
  - Discomfort [Unknown]
  - Irritability [Unknown]
  - Blood glucose increased [Unknown]
  - Back pain [Unknown]
  - Paraesthesia [Unknown]
  - Dyspnoea [Unknown]
  - Asthenia [Unknown]
